FAERS Safety Report 9306254 (Version 1)
Quarter: 2013Q2

REPORT INFORMATION
  Report Type: Spontaneous
  Country: CH (occurrence: CH)
  Receive Date: 20130523
  Receipt Date: 20130523
  Transmission Date: 20140414
  Serious: Yes (Hospitalization)
  Sender: FDA-Public Use
  Company Number: CH-TEVA-406043ISR

PATIENT
  Age: 87 Year
  Sex: Female

DRUGS (13)
  1. SOTALOL-MEPHA 80 TABLETS [Suspect]
     Dosage: 120 MILLIGRAM DAILY; 40 MG - 0 - 80 MG - 0, REDUCED
     Route: 048
  2. SOTALOL-MEPHA 80 TABLETS [Suspect]
     Dosage: 80 MILLIGRAM DAILY; 40 MG - 0 - 40 MG - 0, REDUCED
     Route: 048
  3. SEROQUEL 25 MG FILM-COATED TABLET [Suspect]
     Dosage: 12.5 MILLIGRAM DAILY; START DATE UNKNOWN, DOSE WAS RECENTLY INCREASED
     Route: 048
     Dates: end: 20130318
  4. TRITTICO 50 MG TABLETS [Suspect]
     Dosage: 25 MILLIGRAM DAILY; START DATE UNKNOWN
     Route: 048
     Dates: end: 20130318
  5. IMOVANE TABLETS [Suspect]
     Dosage: 7.5 MILLIGRAM DAILY; START DATE UNKNOWN
     Route: 048
     Dates: end: 20130318
  6. LORAMET 2.0 TABLETS [Suspect]
     Dosage: 2 MILLIGRAM DAILY; START DATE UNKNOWN
     Route: 048
     Dates: end: 20130318
  7. ASPIRIN CARDIO [Concomitant]
     Dosage: 100 MILLIGRAM DAILY; CONTINUING
     Route: 048
  8. MEPHANOL [Concomitant]
     Dosage: 100 MILLIGRAM DAILY; CONTINUING
     Route: 048
  9. METFORMIN [Concomitant]
     Dosage: 500 MILLIGRAM DAILY; CONTINUING
     Route: 048
  10. PROLIA [Concomitant]
     Dosage: .3333 MILLIGRAM DAILY; CONTINUING
     Route: 058
  11. PANTOZOL [Concomitant]
     Dosage: 20 MILLIGRAM DAILY; CONTINUING
     Route: 048
  12. CRESTOR [Concomitant]
     Dosage: 5 MILLIGRAM DAILY;
     Route: 048
     Dates: end: 20130318
  13. VESICARE [Concomitant]
     Dosage: 5 MILLIGRAM DAILY;
     Route: 048
     Dates: end: 20130318

REACTIONS (7)
  - Drug administration error [Recovered/Resolved]
  - Drug effect increased [Recovered/Resolved]
  - Confusional state [Recovering/Resolving]
  - Speech disorder [Recovering/Resolving]
  - Asthenia [Recovering/Resolving]
  - Fall [Unknown]
  - Cardiac failure [Unknown]
